FAERS Safety Report 12078086 (Version 1)
Quarter: 2016Q1

REPORT INFORMATION
  Report Type: Spontaneous
  Country: CA (occurrence: CA)
  Receive Date: 20160215
  Receipt Date: 20160215
  Transmission Date: 20160526
  Serious: Yes (Death)
  Sender: FDA-Public Use
  Company Number: CA-PFIZER INC-2016078545

PATIENT
  Age: 74 Year
  Sex: Male
  Weight: 73 kg

DRUGS (1)
  1. DILANTIN [Suspect]
     Active Substance: PHENYTOIN
     Indication: SEIZURE
     Dosage: 200 MG, 2X/DAY
     Route: 048

REACTIONS (12)
  - Erythema [Fatal]
  - Penile discharge [Fatal]
  - Swollen tongue [Fatal]
  - Blister [Fatal]
  - Ear swelling [Fatal]
  - Pulmonary congestion [Fatal]
  - Pain [Fatal]
  - Lip swelling [Fatal]
  - Rash maculo-papular [Fatal]
  - Skin plaque [Fatal]
  - Urticaria [Fatal]
  - Lip pain [Fatal]
